FAERS Safety Report 5054052-9 (Version None)
Quarter: 2006Q2

REPORT INFORMATION
  Report Type: 
  Country: None (occurrence: None)
  Receive Date: 20060616
  Receipt Date: 20050729
  Transmission Date: 20061013
  Serious: Yes (Hospitalization, Other)
  Sender: FDA-Public Use
  Company Number: 200515260US

PATIENT
  Age: 6 Year
  Sex: Female

DRUGS (2)
  1. INSULIN GLARGINE (LANTUS) SLUTION FOR INJECTION [Suspect]
     Indication: DIABETES MELLITUS INSULIN-DEPENDENT
     Dosage: 5 U QD INJ
     Dates: start: 20050504
  2. OPTICLIK [Suspect]
     Indication: DIABETES MELLITUS INSULIN-DEPENDENT
     Dates: start: 20050504

REACTIONS (1)
  - HYPERGLYCAEMIA [None]
